FAERS Safety Report 6408774-5 (Version None)
Quarter: 2009Q4

REPORT INFORMATION
  Report Type: 
  Country: None (occurrence: None)
  Receive Date: 20091021
  Receipt Date: 20091014
  Transmission Date: 20100525
  Serious: Yes (Other)
  Sender: FDA-Public Use
  Company Number: A0812442A

PATIENT
  Sex: Male

DRUGS (3)
  1. SERETIDE [Suspect]
     Indication: LUNG DISORDER
     Dosage: 1PUFF TWICE PER DAY
     Route: 055
     Dates: start: 20090101, end: 20090401
  2. SPIRIVA [Concomitant]
     Dosage: 2PUFF AT NIGHT
     Dates: start: 20090101, end: 20090401
  3. ATENOLOL [Concomitant]
     Dosage: 1TAB PER DAY
     Dates: start: 20040101

REACTIONS (2)
  - PLEURAL EFFUSION [None]
  - SURGERY [None]
